FAERS Safety Report 9026888 (Version 1)
Quarter: 2013Q1

REPORT INFORMATION
  Report Type: Spontaneous
  Country: US (occurrence: US)
  Receive Date: 20130123
  Receipt Date: 20130123
  Transmission Date: 20140127
  Serious: No
  Sender: FDA-Public Use
  Company Number: US-PFIZER INC-2013024402

PATIENT
  Sex: Female

DRUGS (2)
  1. LEVOXYL [Suspect]
     Dosage: UNK
  2. LEVOXYL [Suspect]
     Dosage: 175 UG, UNK

REACTIONS (2)
  - Product quality issue [Unknown]
  - Palpitations [Unknown]
